FAERS Safety Report 5546725-6 (Version None)
Quarter: 2007Q4

REPORT INFORMATION
  Report Type: 
  Country: None (occurrence: None)
  Receive Date: 20071211
  Receipt Date: 20071130
  Transmission Date: 20080405
  Serious: Yes (Hospitalization)
  Sender: FDA-Public Use
  Company Number: FR-ROCHE-534572

PATIENT
  Age: 90 Year
  Sex: Female

DRUGS (9)
  1. RIVOTRIL [Suspect]
     Indication: DRUG USE FOR UNKNOWN INDICATION
     Route: 048
     Dates: end: 20070803
  2. LAROXYL [Suspect]
     Indication: DRUG USE FOR UNKNOWN INDICATION
     Dosage: DOSAGE REGIMEN: ONE DOSE QD.
     Route: 048
     Dates: end: 20070803
  3. PRACTAZIN [Suspect]
     Indication: DRUG USE FOR UNKNOWN INDICATION
     Dosage: DOSAGE REGIMEN: ONE DOSE QD.
     Route: 048
     Dates: end: 20070803
  4. MADOPAR [Concomitant]
  5. PLAVIX [Concomitant]
  6. CRESTOR [Concomitant]
  7. PROPRANOLOL [Concomitant]
  8. CALCIPARINE [Concomitant]
  9. ACETAMINOPHEN [Concomitant]

REACTIONS (1)
  - HYPONATRAEMIA [None]
